FAERS Safety Report 13861802 (Version 2)
Quarter: 2017Q3

REPORT INFORMATION
  Report Type: Spontaneous
  Country: US (occurrence: US)
  Receive Date: 20170811
  Receipt Date: 20170926
  Transmission Date: 20171127
  Serious: Yes (Life-Threatening, Hospitalization, Other)
  Sender: FDA-Public Use
  Company Number: US-BRISTOL-MYERS SQUIBB COMPANY-BMS-2017-070099

PATIENT
  Sex: Male
  Weight: 116.5 kg

DRUGS (1)
  1. YERVOY [Suspect]
     Active Substance: IPILIMUMAB
     Indication: MALIGNANT MELANOMA
     Dosage: 1168 MG, UNK
     Route: 065
     Dates: end: 20170802

REACTIONS (7)
  - Cardiac arrest [Unknown]
  - Syncope [Unknown]
  - Hypotension [Unknown]
  - Ankle fracture [Unknown]
  - Hypertension [Unknown]
  - Diverticulitis [Unknown]
  - Chest pain [Unknown]
